FAERS Safety Report 9106744 (Version 1)
Quarter: 2013Q1

REPORT INFORMATION
  Report Type: Spontaneous
  Country: US (occurrence: US)
  Receive Date: 20130221
  Receipt Date: 20130221
  Transmission Date: 20140127
  Serious: Yes (Hospitalization)
  Sender: FDA-Public Use
  Company Number: US-GILEAD-2013-0070112

PATIENT
  Sex: Female

DRUGS (3)
  1. LETAIRIS [Suspect]
     Indication: COR PULMONALE
     Dosage: 10 MG, QD
     Route: 048
     Dates: start: 20080416
  2. VENTAVIS [Concomitant]
  3. REVATIO [Concomitant]

REACTIONS (1)
  - Respiratory tract infection [Unknown]
